FAERS Safety Report 6823223-0 (Version None)
Quarter: 2010Q3

REPORT INFORMATION
  Report Type: 
  Country: None (occurrence: None)
  Receive Date: 20100702
  Receipt Date: 20100621
  Transmission Date: 20110219
  Serious: Yes (Hospitalization)
  Sender: FDA-Public Use
  Company Number: 1-23144130

PATIENT
  Age: 48 Year
  Sex: Male

DRUGS (1)
  1. ATENOLOL [Suspect]
     Indication: HYPERTENSION
     Dosage: 50 MG,

REACTIONS (12)
  - DEEP VEIN THROMBOSIS [None]
  - GASTRITIS [None]
  - INTERVERTEBRAL DISC PROTRUSION [None]
  - LETHARGY [None]
  - PARAPLEGIA [None]
  - PNEUMONIA [None]
  - SPINAL COLUMN STENOSIS [None]
  - SPINAL CORD INFARCTION [None]
  - SPINAL CORD INJURY CERVICAL [None]
  - SPINAL SHOCK [None]
  - STRESS [None]
  - UPPER GASTROINTESTINAL HAEMORRHAGE [None]
